FAERS Safety Report 19293328 (Version 1)
Quarter: 2021Q2

REPORT INFORMATION
  Report Type: Spontaneous
  Country: US (occurrence: US)
  Receive Date: 20210522
  Receipt Date: 20210522
  Transmission Date: 20210717
  Serious: Yes (Hospitalization)
  Sender: FDA-Public Use
  Company Number: None

PATIENT
  Age: 70 Year
  Sex: Female
  Weight: 73.9 kg

DRUGS (1)
  1. TEMOZOLOMIDE. [Suspect]
     Active Substance: TEMOZOLOMIDE
     Dates: end: 20210412

REACTIONS (8)
  - Diarrhoea [None]
  - Vomiting [None]
  - Deep vein thrombosis [None]
  - Haemoglobin decreased [None]
  - Pollakiuria [None]
  - Urinary tract infection [None]
  - Hepatic enzyme increased [None]
  - Enterocolitis [None]

NARRATIVE: CASE EVENT DATE: 20210427
